FAERS Safety Report 7802184-1 (Version None)
Quarter: 2011Q4

REPORT INFORMATION
  Report Type: 
  Country: None (occurrence: None)
  Receive Date: 20111007
  Receipt Date: 20110928
  Transmission Date: 20120403
  Serious: Yes (Hospitalization)
  Sender: FDA-Public Use
  Company Number: US-BAYER-2011-091844

PATIENT
  Age: 62 Year
  Sex: Male
  Weight: 112.3 kg

DRUGS (5)
  1. MDX-010 [Suspect]
     Dosage: 10 MG/KG, ONCE
     Route: 042
     Dates: start: 20110629, end: 20110629
  2. SARGRAMOSTIM [Suspect]
     Indication: MALIGNANT MELANOMA
     Dosage: 250 ?G, QD
     Route: 058
     Dates: start: 20110629
  3. ANTIHYPERTENSIVES [Concomitant]
  4. MDX-010 [Suspect]
     Indication: MALIGNANT MELANOMA
     Dosage: 10 MG/KG, ONCE
     Route: 042
     Dates: start: 20110720, end: 20110720
  5. SARGRAMOSTIM [Suspect]
     Dosage: 250 ?G, QD
     Route: 058
     Dates: start: 20110720, end: 20110802

REACTIONS (3)
  - DEHYDRATION [None]
  - SYNCOPE [None]
  - HYPOTENSION [None]
